FAERS Safety Report 17355033 (Version 1)
Quarter: 2020Q1

REPORT INFORMATION
  Report Type: Spontaneous
  Country: IT (occurrence: IT)
  Receive Date: 20200131
  Receipt Date: 20200131
  Transmission Date: 20200409
  Serious: Yes (Hospitalization)
  Sender: FDA-Public Use
  Company Number: IT-MYLANLABS-2020M1010927

PATIENT
  Age: 37 Year
  Sex: Male

DRUGS (2)
  1. LORMETAZEPAM [Suspect]
     Active Substance: LORMETAZEPAM
     Indication: ANXIETY
     Dosage: 25 MILLIGRAM, QD
     Route: 048
  2. TRIAZOLAM. [Suspect]
     Active Substance: TRIAZOLAM
     Indication: ANXIETY
     Dosage: 1 MILLIGRAM, QD
     Route: 048

REACTIONS (3)
  - Off label use [Recovering/Resolving]
  - Drug abuse [Recovering/Resolving]
  - Drug dependence [Recovering/Resolving]

NARRATIVE: CASE EVENT DATE: 20191120
